FAERS Safety Report 16551656 (Version 1)
Quarter: 2019Q3

REPORT INFORMATION
  Report Type: Spontaneous
  Country: US (occurrence: US)
  Receive Date: 20190529
  Receipt Date: 20190529
  Transmission Date: 20191004
  Serious: Yes (Hospitalization)
  Sender: FDA-Public Use
  Company Number: None

PATIENT
  Age: 70 Year
  Sex: Male
  Weight: 107.05 kg

DRUGS (1)
  1. MODAFINIL. [Suspect]
     Active Substance: MODAFINIL
     Indication: NARCOLEPSY
     Route: 048
     Dates: start: 20190116, end: 20190506

REACTIONS (4)
  - Confusional state [None]
  - Memory impairment [None]
  - Delirium [None]
  - Urinary tract infection [None]

NARRATIVE: CASE EVENT DATE: 20190501
